FAERS Safety Report 9521409 (Version 3)
Quarter: 2014Q1

REPORT INFORMATION
  Report Type: Spontaneous
  Country: US (occurrence: None)
  Receive Date: 20130911
  Receipt Date: 20140331
  Transmission Date: 20141002
  Serious: Yes (Hospitalization, Other)
  Sender: FDA-Public Use
  Company Number: AUR-APL-2013-07456

PATIENT
  Age: 56 Year
  Sex: Male

DRUGS (6)
  1. METOPROLOL [Suspect]
     Indication: PRODUCT USED FOR UNKNOWN INDICATION
     Dosage: UP TO 500MG,ORAL
     Route: 048
  2. LISINOPRIL [Suspect]
     Indication: PRODUCT USED FOR UNKNOWN INDICATION
     Dosage: {5 LISINOPRIL TABLETS, ORAL
     Route: 048
  3. INSULIN GLARGINE [Suspect]
     Indication: PRODUCT USED FOR UNKNOWN INDICATION
     Dosage: UP TO 3,300 UNITS
  4. DIPHENHYDRAMINE [Suspect]
     Indication: PRODUCT USED FOR UNKNOWN INDICATION
     Dosage: UP TO 1.2 GM
  5. FUROSEMIDE [Suspect]
     Indication: PRODUCT USED FOR UNKNOWN INDICATION
     Dosage: {5 FUROSEMIDE TABLETS
     Route: 048
  6. ISOSORBIDE DINITRATE [Suspect]
     Indication: PRODUCT USED FOR UNKNOWN INDICATION
     Dosage: {5 ISOSORBIDE DINITRATE
     Route: 048

REACTIONS (9)
  - Hypoglycaemia [None]
  - Overdose [None]
  - Somnolence [None]
  - Refusal of treatment by patient [None]
  - Suicide attempt [None]
  - Diet refusal [None]
  - Intentional overdose [None]
  - Hypotension [None]
  - Heart rate decreased [None]
